FAERS Safety Report 5850409-4 (Version None)
Quarter: 2008Q3

REPORT INFORMATION
  Report Type: 
  Country: None (occurrence: None)
  Receive Date: 20080819
  Receipt Date: 20080811
  Transmission Date: 20090109
  Serious: Yes (Other)
  Sender: FDA-Public Use
  Company Number: US-PFIZER INC-2008054617

PATIENT
  Sex: Female
  Weight: 72.6 kg

DRUGS (7)
  1. GEODON [Suspect]
     Indication: DEPRESSION
  2. GEODON [Suspect]
     Indication: BIPOLAR DISORDER
  3. CHANTIX [Suspect]
     Indication: SMOKING CESSATION THERAPY
  4. COZAAR [Concomitant]
  5. ANTIHYPERTENSIVES [Concomitant]
  6. EFFEXOR [Concomitant]
  7. ORAL CONTRACEPTIVE NOS [Concomitant]

REACTIONS (9)
  - ABNORMAL BEHAVIOUR [None]
  - GAIT DISTURBANCE [None]
  - IMPAIRED DRIVING ABILITY [None]
  - IMPAIRED WORK ABILITY [None]
  - MEMORY IMPAIRMENT [None]
  - MYALGIA [None]
  - RESTLESSNESS [None]
  - TOBACCO USER [None]
  - VOMITING [None]
